FAERS Safety Report 7067597-7 (Version None)
Quarter: 2010Q4

REPORT INFORMATION
  Report Type: 
  Country: None (occurrence: None)
  Receive Date: 20101028
  Receipt Date: 20101021
  Transmission Date: 20110411
  Serious: Yes (Other)
  Sender: FDA-Public Use
  Company Number: JP-BRISTOL-MYERS SQUIBB COMPANY-15252737

PATIENT
  Age: 27 Year
  Sex: Female
  Weight: 51 kg

DRUGS (2)
  1. KENACORT [Suspect]
     Indication: VOGT-KOYANAGI-HARADA SYNDROME
     Dosage: SUB-TENON;1DF-40MG FOR RIGHT AND 40MG FOR LEFT;20OCT-05NOV2009
     Dates: start: 20091020, end: 20091105
  2. BETAMETHASONE [Suspect]

REACTIONS (5)
  - DISSEMINATED INTRAVASCULAR COAGULATION [None]
  - HAEMORRHAGIC ANAEMIA [None]
  - LIVE BIRTH [None]
  - PREGNANCY [None]
  - SHOCK HAEMORRHAGIC [None]
